FAERS Safety Report 9257399 (Version 4)
Quarter: 2013Q4

REPORT INFORMATION
  Report Type: Spontaneous
  Country: GB (occurrence: GB)
  Receive Date: 20130426
  Receipt Date: 20131016
  Transmission Date: 20140711
  Serious: Yes (Hospitalization, Other)
  Sender: FDA-Public Use
  Company Number: GB-ROCHE-1218534

PATIENT
  Age: 34 Year
  Sex: Female
  Weight: 57.7 kg

DRUGS (4)
  1. RIBAVIRIN [Suspect]
     Indication: CHRONIC HEPATITIS C
     Route: 048
     Dates: start: 20130129, end: 20130328
  2. INCIVO [Suspect]
     Indication: CHRONIC HEPATITIS C
     Route: 048
     Dates: start: 20130129, end: 20130328
  3. PEG-INTERFERON ALFA 2A [Concomitant]
     Route: 065
     Dates: start: 20130129
  4. TEMAZEPAM [Concomitant]

REACTIONS (6)
  - Drug reaction with eosinophilia and systemic symptoms [Recovered/Resolved]
  - Fatigue [Recovering/Resolving]
  - Malaise [Recovering/Resolving]
  - Mucosal inflammation [Recovering/Resolving]
  - Chills [Recovering/Resolving]
  - Rash generalised [Recovering/Resolving]
